FAERS Safety Report 6361143-9 (Version None)
Quarter: 2009Q3

REPORT INFORMATION
  Report Type: 
  Country: None (occurrence: None)
  Receive Date: 20090918
  Receipt Date: 20090908
  Transmission Date: 20100115
  Serious: Yes (Other)
  Sender: FDA-Public Use
  Company Number: US-PFIZER INC-2007034854

PATIENT
  Sex: Male

DRUGS (11)
  1. VIAGRA [Suspect]
     Indication: ERECTILE DYSFUNCTION
     Dosage: 100 MG, UNK
     Route: 048
     Dates: start: 20040714, end: 20050130
  2. VIAGRA [Suspect]
     Dosage: 50 MG, UNK
     Route: 048
     Dates: start: 20040714
  3. METFORMIN [Concomitant]
     Dosage: 1000 MG, 2X/DAY
  4. GLIPIZIDE [Concomitant]
     Dosage: 10 MG, 2X/DAY
  5. VYTORIN [Concomitant]
     Dosage: UNK
  6. METOPROLOL [Concomitant]
     Dosage: 50 MG, 1X/DAY
  7. HYZAAR [Concomitant]
     Dosage: UNK
  8. ACTOS [Concomitant]
     Dosage: 30 MG, 1X/DAY
  9. SITAGLIPTIN [Concomitant]
     Dosage: 100 MG, 1X/DAY
  10. HYDROCHLOROTHIAZIDE [Concomitant]
     Dosage: 25 MG, 1X/DAY
  11. ACETYLSALICYLIC ACID [Concomitant]
     Dosage: 325 MG, 1X/DAY

REACTIONS (2)
  - BLINDNESS [None]
  - OPTIC ISCHAEMIC NEUROPATHY [None]
